FAERS Safety Report 23217470 (Version 1)
Quarter: 2023Q4

REPORT INFORMATION
  Report Type: Report from Study
  Country: JP (occurrence: JP)
  Receive Date: 20231122
  Receipt Date: 20231122
  Transmission Date: 20240109
  Serious: Yes (Hospitalization)
  Sender: FDA-Public Use
  Company Number: JP-Eisai Medical Research-EC-2023-132944

PATIENT
  Age: 62 Year
  Sex: Male
  Weight: 70.5 kg

DRUGS (19)
  1. LENVATINIB [Suspect]
     Active Substance: LENVATINIB
     Indication: Oesophageal adenocarcinoma
     Route: 048
     Dates: start: 20220615, end: 20220628
  2. LENVATINIB [Suspect]
     Active Substance: LENVATINIB
     Indication: Adenocarcinoma gastric
     Route: 048
     Dates: start: 20220803, end: 20230117
  3. PEMBROLIZUMAB [Suspect]
     Active Substance: PEMBROLIZUMAB
     Indication: Oesophageal adenocarcinoma
     Dosage: UP TO MAX 16 DOSES
     Route: 041
     Dates: start: 20220615, end: 20220615
  4. PEMBROLIZUMAB [Suspect]
     Active Substance: PEMBROLIZUMAB
     Indication: Adenocarcinoma gastric
     Dosage: UP TO MAX 16 DOSES
     Route: 041
     Dates: start: 20220803, end: 20221207
  5. PEMBROLIZUMAB [Suspect]
     Active Substance: PEMBROLIZUMAB
     Dosage: UP TO MAX 16 DOSES
     Route: 041
     Dates: start: 20230215, end: 20230802
  6. CLOPIDOGREL BISULFATE [Concomitant]
     Active Substance: CLOPIDOGREL BISULFATE
     Dates: start: 201601
  7. BISOPROLOL FUMARATE [Concomitant]
     Active Substance: BISOPROLOL FUMARATE
     Dates: start: 202001
  8. TRESIBA [Concomitant]
     Active Substance: INSULIN DEGLUDEC
     Route: 058
     Dates: start: 201701, end: 20230505
  9. GRANISETRON HYDROCHLORIDE [Concomitant]
     Active Substance: GRANISETRON HYDROCHLORIDE
     Dates: start: 20220310, end: 20220630
  10. METOCLOPRAMIDE [Concomitant]
     Active Substance: METOCLOPRAMIDE
     Dates: start: 20220311, end: 20220630
  11. LANSOPRAZOLE [Concomitant]
     Active Substance: LANSOPRAZOLE
     Dates: start: 20220320, end: 20220713
  12. EFINACONAZOLE [Concomitant]
     Active Substance: EFINACONAZOLE
     Route: 061
     Dates: start: 202103, end: 20230131
  13. GLUCOBAY [Concomitant]
     Active Substance: ACARBOSE
     Dates: start: 20220326, end: 20221127
  14. CANDESARTAN CILEXETIL\HYDROCHLOROTHIAZIDE [Concomitant]
     Active Substance: CANDESARTAN CILEXETIL\HYDROCHLOROTHIAZIDE
     Dates: start: 20220326, end: 20220707
  15. CLOBETASOL [Concomitant]
     Active Substance: CLOBETASOL
     Dates: start: 20220406, end: 20221207
  16. BIO-THREE [Concomitant]
     Active Substance: HERBALS
     Dates: start: 20220406
  17. ACARBOSE [Concomitant]
     Active Substance: ACARBOSE
     Dates: start: 20221128, end: 20230125
  18. NIFEDIPINE [Concomitant]
     Active Substance: NIFEDIPINE
     Dates: start: 201501, end: 20230124
  19. KERATINAMIN [UREA] [Concomitant]
     Dates: start: 20220309

REACTIONS (2)
  - Blood creatinine increased [Not Recovered/Not Resolved]
  - Pyrexia [Recovered/Resolved]

NARRATIVE: CASE EVENT DATE: 20220629
